FAERS Safety Report 6168481-3 (Version None)
Quarter: 2009Q2

REPORT INFORMATION
  Report Type: 
  Country: None (occurrence: None)
  Receive Date: 20090427
  Receipt Date: 20090417
  Transmission Date: 20091009
  Serious: Yes (Hospitalization)
  Sender: FDA-Public Use
  Company Number: A0780186A

PATIENT
  Age: 67 Year
  Sex: Female
  Weight: 79.5 kg

DRUGS (8)
  1. AVANDAMET [Suspect]
     Indication: DIABETES MELLITUS
     Route: 048
     Dates: start: 20031001, end: 20060401
  2. AVANDIA [Suspect]
     Indication: DIABETES MELLITUS
     Dosage: 4MG VARIABLE DOSE
     Route: 048
     Dates: start: 20060328, end: 20070801
  3. CLONIDINE [Concomitant]
  4. FOSAMAX [Concomitant]
  5. MUPIROCIN [Concomitant]
  6. AGGRENOX [Concomitant]
  7. LISINOPRIL [Concomitant]
  8. INSPRA [Concomitant]

REACTIONS (2)
  - CARDIAC FAILURE CONGESTIVE [None]
  - MYOCARDIAL INFARCTION [None]
